FAERS Safety Report 7064634-0 (Version None)
Quarter: 2010Q4

REPORT INFORMATION
  Report Type: 
  Country: None (occurrence: None)
  Receive Date: 20101027
  Receipt Date: 20101018
  Transmission Date: 20110411
  Serious: Yes (Other)
  Sender: FDA-Public Use
  Company Number: US-JNJFOC-20101005130

PATIENT
  Age: 24 Year
  Sex: Female
  Weight: 79.38 kg

DRUGS (4)
  1. MONISTAT 1 COMBINATION PACK DAY OR NIGHT [Suspect]
     Route: 067
  2. MONISTAT 1 COMBINATION PACK DAY OR NIGHT [Suspect]
     Indication: FUNGAL INFECTION
     Route: 067
  3. MONISTAT 1 COMBINATION PACK DAY OR NIGHT [Suspect]
     Route: 061
  4. MONISTAT 1 COMBINATION PACK DAY OR NIGHT [Suspect]
     Route: 061

REACTIONS (5)
  - PYREXIA [None]
  - SYNCOPE [None]
  - VULVAL HAEMORRHAGE [None]
  - VULVOVAGINAL BURNING SENSATION [None]
  - VULVOVAGINAL DISCOMFORT [None]
